FAERS Safety Report 5463578-5 (Version None)
Quarter: 2007Q3

REPORT INFORMATION
  Report Type: 
  Country: None (occurrence: None)
  Receive Date: 20070919
  Receipt Date: 20070905
  Transmission Date: 20080115
  Serious: Yes (Death)
  Sender: FDA-Public Use
  Company Number: 2007S1000347

PATIENT

DRUGS (1)
  1. CUBICIN [Suspect]
     Indication: ENTEROCOCCAL BACTERAEMIA

REACTIONS (1)
  - DEATH [None]
